FAERS Safety Report 9185286 (Version 3)
Quarter: 2013Q2

REPORT INFORMATION
  Report Type: Spontaneous
  Country: IT (occurrence: IT)
  Receive Date: 20130325
  Receipt Date: 20130501
  Transmission Date: 20140414
  Serious: Yes (Other)
  Sender: FDA-Public Use
  Company Number: IT-BIOGENIDEC-2012BI063308

PATIENT
  Age: 64 Year
  Sex: Male

DRUGS (4)
  1. AVONEX [Suspect]
     Indication: MULTIPLE SCLEROSIS
     Route: 030
     Dates: start: 20110401, end: 20121217
  2. TRUSOPT [Concomitant]
     Indication: GLAUCOMA
     Dates: start: 20060201
  3. XALACOM [Concomitant]
     Indication: GLAUCOMA
     Dates: start: 20060201
  4. PRADIF [Concomitant]
     Indication: BENIGN PROSTATIC HYPERPLASIA
     Dates: start: 20101001

REACTIONS (1)
  - Dermatitis [Recovered/Resolved]
